FAERS Safety Report 12965728 (Version 1)
Quarter: 2016Q4

REPORT INFORMATION
  Report Type: Spontaneous
  Country: US (occurrence: US)
  Receive Date: 20161122
  Receipt Date: 20161122
  Transmission Date: 20170207
  Serious: No
  Sender: FDA-Public Use
  Company Number: US-MYLANLABS-2016M1019192

PATIENT
  Sex: Female

DRUGS (2)
  1. MAXZIDE [Suspect]
     Active Substance: HYDROCHLOROTHIAZIDE\TRIAMTERENE
     Dosage: 18.75/12.5 MG, QD
     Route: 048
     Dates: start: 2014, end: 2016
  2. MAXZIDE [Suspect]
     Active Substance: HYDROCHLOROTHIAZIDE\TRIAMTERENE
     Dosage: 37.5/25 MG, QD
     Route: 048
     Dates: start: 2011, end: 2014

REACTIONS (1)
  - Nocturia [Recovered/Resolved]

NARRATIVE: CASE EVENT DATE: 2014
